FAERS Safety Report 9729525 (Version 1)
Quarter: 2013Q4

REPORT INFORMATION
  Report Type: Spontaneous
  Country: US (occurrence: US)
  Receive Date: 20131204
  Receipt Date: 20131204
  Transmission Date: 20140711
  Serious: No
  Sender: FDA-Public Use
  Company Number: US-GILEAD-2009-0022100

PATIENT
  Sex: Female
  Weight: 49.44 kg

DRUGS (16)
  1. LETAIRIS [Suspect]
     Indication: PULMONARY ARTERIAL HYPERTENSION
     Route: 048
     Dates: start: 20071008
  2. REVATIO [Concomitant]
  3. COUMADIN [Concomitant]
  4. LASIX [Concomitant]
  5. DIGOXIN [Concomitant]
  6. ALDACTONE [Concomitant]
  7. AMBIEN [Concomitant]
  8. LEXAPRO [Concomitant]
  9. ACETAMINOPHEN [Concomitant]
  10. TRAZODONE [Concomitant]
  11. FOSAMAX [Concomitant]
  12. VITAMIN C [Concomitant]
  13. PRILOSEC [Concomitant]
  14. NEXIUM [Concomitant]
  15. NAMENDA [Concomitant]
  16. CALCIUM PLUS D [Concomitant]

REACTIONS (7)
  - Gastritis [Unknown]
  - Insomnia [Unknown]
  - Suffocation feeling [Unknown]
  - Headache [Unknown]
  - Palpitations [Unknown]
  - Dyspnoea [Unknown]
  - Nasal congestion [Unknown]
